FAERS Safety Report 15011889 (Version 1)
Quarter: 2018Q2

REPORT INFORMATION
  Report Type: Spontaneous
  Country: GB (occurrence: GB)
  Receive Date: 20180614
  Receipt Date: 20180614
  Transmission Date: 20180711
  Serious: Yes (Hospitalization)
  Sender: FDA-Public Use
  Company Number: GB-TEVA-2018-GB-906418

PATIENT
  Age: 72 Year
  Sex: Male

DRUGS (12)
  1. SANDOCAL [Concomitant]
  2. PARACETAMOL [Concomitant]
     Active Substance: ACETAMINOPHEN
  3. TACROLIMUS. [Concomitant]
     Active Substance: TACROLIMUS
  4. SODIUM HYDROGEN CARBONATE [Concomitant]
     Active Substance: SODIUM BICARBONATE
  5. ALFACALCIDOL [Concomitant]
     Active Substance: ALFACALCIDOL
  6. VARDENAFIL [Concomitant]
     Active Substance: VARDENAFIL
  7. MYCOPHENOLIC ACID. [Concomitant]
     Active Substance: MYCOPHENOLIC ACID
  8. ATORVASTATIN [Concomitant]
     Active Substance: ATORVASTATIN
  9. WARFARIN [Suspect]
     Active Substance: WARFARIN
     Indication: ATRIAL FIBRILLATION
     Dosage: 3MG DAILY, EXCEPT ON SATURDAY WHICH IS 2MG DAILY; TARGET INR IS 2.5-3.5
     Route: 048
  10. AMLODIPINE [Concomitant]
     Active Substance: AMLODIPINE BESYLATE
  11. BISOPROLOL [Concomitant]
     Active Substance: BISOPROLOL
  12. ALLOPURINOL. [Concomitant]
     Active Substance: ALLOPURINOL

REACTIONS (4)
  - Abdominal wall haematoma [Unknown]
  - International normalised ratio increased [Unknown]
  - Haemorrhage [Recovered/Resolved]
  - Contusion [Unknown]
